FAERS Safety Report 6634230-5 (Version None)
Quarter: 2010Q1

REPORT INFORMATION
  Report Type: 
  Country: None (occurrence: None)
  Receive Date: 20100315
  Receipt Date: 20100303
  Transmission Date: 20100710
  Serious: Yes (Hospitalization)
  Sender: FDA-Public Use
  Company Number: US-KINGPHARMUSA00001-K201000255

PATIENT
  Sex: Female
  Weight: 99.32 kg

DRUGS (1)
  1. THROMBIN NOS [Suspect]
     Indication: ARTERIAL BYPASS OPERATION
     Dosage: 20000 U, UNK
     Dates: start: 20070226, end: 20070226

REACTIONS (3)
  - ENTEROCOCCAL INFECTION [None]
  - KLEBSIELLA INFECTION [None]
  - POSTOPERATIVE WOUND INFECTION [None]
